FAERS Safety Report 5883292-1 (Version None)
Quarter: 2008Q3

REPORT INFORMATION
  Report Type: 
  Country: None (occurrence: None)
  Receive Date: 20080915
  Receipt Date: 20080908
  Transmission Date: 20090109
  Serious: Yes (Hospitalization)
  Sender: FDA-Public Use
  Company Number: US-ELI_LILLY_AND_COMPANY-US200807001735

PATIENT
  Sex: Female
  Weight: 70.748 kg

DRUGS (15)
  1. PEMETREXED [Suspect]
     Indication: NON-SMALL CELL LUNG CANCER
     Dosage: 500 MG/M2, OTHER
     Route: 042
     Dates: start: 20080611, end: 20080813
  2. FOLIC ACID [Concomitant]
     Indication: VITAMIN SUPPLEMENTATION
     Dates: start: 20080604
  3. VITAMIN B-12 [Concomitant]
     Indication: VITAMIN SUPPLEMENTATION
     Dates: start: 20080604
  4. DEXAMETHASONE [Concomitant]
     Indication: PROPHYLAXIS
     Dates: start: 20080604
  5. VERAPAMIL [Concomitant]
     Indication: BLOOD PRESSURE
     Dosage: 120 MG, DAILY (1/D)
     Route: 048
     Dates: start: 20080301
  6. CELEXA [Concomitant]
     Indication: DEPRESSION
     Dosage: 20 MG, DAILY (1/D)
     Route: 048
     Dates: start: 20080303
  7. OSCAL [Concomitant]
     Indication: VITAMIN SUPPLEMENTATION
     Dates: start: 20080610
  8. POTASSIUM CHLORIDE [Concomitant]
     Indication: VITAMIN SUPPLEMENTATION
     Dates: start: 20080606
  9. MAGNESIUM SULFATE [Concomitant]
     Indication: VITAMIN SUPPLEMENTATION
     Dosage: UNK, UNK
     Dates: start: 20070301
  10. MAGNESIUM SULFATE [Concomitant]
     Dosage: 400 MG, 4/D
     Route: 048
     Dates: start: 20080615
  11. SOLU-MEDROL [Concomitant]
     Indication: ASTHMA
     Dates: start: 19970101
  12. COMPAZINE [Concomitant]
     Indication: NAUSEA
     Dosage: 5 MG, AS NEEDED
     Route: 048
     Dates: start: 20080101
  13. ALBUTEROL [Concomitant]
     Indication: CHRONIC OBSTRUCTIVE PULMONARY DISEASE
     Dosage: UNK, AS NEEDED
     Route: 055
     Dates: start: 19970101
  14. FLUTICASONE W/SALMETEROL [Concomitant]
     Dosage: 1 D/F, 2/D
     Route: 055
  15. DEMECLOCYCLINE HCL [Concomitant]
     Dosage: 300 MG, 4/D
     Route: 048

REACTIONS (3)
  - HYPOKALAEMIA [None]
  - HYPOMAGNESAEMIA [None]
  - HYPONATRAEMIA [None]
